FAERS Safety Report 20766735 (Version 2)
Quarter: 2022Q2

REPORT INFORMATION
  Report Type: Spontaneous
  Country: FR (occurrence: FR)
  Receive Date: 20220429
  Receipt Date: 20220611
  Transmission Date: 20220720
  Serious: Yes (Hospitalization)
  Sender: FDA-Public Use
  Company Number: None

PATIENT
  Age: 81 Year
  Sex: Female

DRUGS (13)
  1. METFORMIN [Suspect]
     Active Substance: METFORMIN HYDROCHLORIDE
     Indication: Type 2 diabetes mellitus
     Dosage: UNIT DOSE: 500 MG, FREQUENCY TIME : 1 DAY, THERAPY START DATE : ASKU
     Route: 048
  2. RILMENIDINE [Suspect]
     Active Substance: RILMENIDINE
     Indication: Hypertension
     Dosage: UNIT DOSE: 2 MG, THERAPY START DATE : ASKU, FREQUENCY TIME : 1 DAY
     Route: 048
  3. TRAMADOL [Suspect]
     Active Substance: TRAMADOL
     Indication: Pain
     Dosage: UNIT DOSE: 150 MG, FREQUENCY TIME : 1 DAY, THERAPY START DATE : ASKU
     Route: 048
     Dates: end: 20220216
  4. ZOPICLONE [Suspect]
     Active Substance: ZOPICLONE
     Indication: Pain
     Dosage: UNIT DOSE: 3.75 MG, FREQUENCY TIME : 1 DAY, THERAPY START DATE : ASKU
     Route: 048
  5. SPIRONOLACTONE [Suspect]
     Active Substance: SPIRONOLACTONE
     Indication: Hypertension
     Dosage: UNIT DOSE: 12.5 MG, FREQUENCY TIME : 1 DAY, THERAPY START DATE : ASKU
     Route: 048
     Dates: end: 20220213
  6. LEVOTHYROXINE [Suspect]
     Active Substance: LEVOTHYROXINE
     Indication: Hypothyroidism
     Dosage: UNIT DOSE: 1 DF, SCORED TABLET, STRENGTH: 150 UG, FREQUENCY TIME : 1 DAY, THERAPY START DATE : ASKU
     Route: 048
  7. METOCLOPRAMIDE [Suspect]
     Active Substance: METOCLOPRAMIDE
     Indication: Nausea
     Dosage: IF NECESSARY, UNIT DOSE: 30 MG, FREQUENCY TIME : 1 DAY, THERAPY START DATE : ASKU
     Route: 048
  8. COVERAM [Suspect]
     Active Substance: AMLODIPINE\PERINDOPRIL
     Indication: Hypertension
     Dosage: 10MG/10MG TABLETS, UNIT DOSE, 1 DF, THERAPY START DATE : ASKU
     Route: 048
     Dates: end: 20220213
  9. REPAGLINIDE [Suspect]
     Active Substance: REPAGLINIDE
     Indication: Type 2 diabetes mellitus
     Dosage: STRENGTH: 2 MG, UNIT DOSE: 4 MG, FREQUENCY TIME : 1 DAY, THERAPY START DATE : ASKU
     Route: 048
  10. IBRANCE [Suspect]
     Active Substance: PALBOCICLIB
     Indication: Breast cancer
     Dosage: STRENGTH: 75 MG, UNIT DOSE: 75 MG, FREQUENCY TIME :1DAY, DURATION : 211 DAY
     Route: 048
     Dates: start: 20210719, end: 20220215
  11. SALAZOPYRINE [Suspect]
     Active Substance: SULFASALAZINE
     Indication: Rheumatoid arthritis
     Dosage: GASTRO-RESISTANT COATED TABLET, UNIT DOSE: 1 GM, STRENGTH: 500 MG, FREQUENCY TIME : 1 DAY, THERAPY
     Route: 048
  12. METOPROLOL FUMARATE [Suspect]
     Active Substance: METOPROLOL FUMARATE
     Indication: Hypertension
     Dosage: METOPROLOL (FUMARATE DE), UNIT DOSE: 100 MG, FREQUENCY TIME : 1 DAY, THERAPY START DATE : ASKU
     Route: 048
  13. FASLODEX [Suspect]
     Active Substance: FULVESTRANT
     Indication: Breast cancer
     Dosage: UNIT DOSE: 1 DF, STRENGTH: 250 MG/5 ML, FREQUENCY TIME : 1 MONTH, THERAPY START DATE AND END DATE :
     Route: 048

REACTIONS (1)
  - Ischaemic stroke [Recovered/Resolved with Sequelae]

NARRATIVE: CASE EVENT DATE: 20220216
